FAERS Safety Report 9750933 (Version 1)
Quarter: 2013Q4

REPORT INFORMATION
  Report Type: Spontaneous
  Country: US (occurrence: US)
  Receive Date: 20131212
  Receipt Date: 20131212
  Transmission Date: 20140711
  Serious: Yes (Other)
  Sender: FDA-Public Use
  Company Number: US-TEVA-402385USA

PATIENT
  Age: 41 Year
  Sex: Female
  Weight: 62.65 kg

DRUGS (6)
  1. PARAGARD 380A [Suspect]
     Indication: CONTRACEPTION
     Route: 015
     Dates: start: 20130430, end: 20130430
  2. TAMOXIFEN [Concomitant]
     Indication: BREAST CANCER
     Dosage: DAILY
  3. CITALOPRAM [Concomitant]
     Indication: DEPRESSION
     Dosage: DAILY
  4. FLUTICASONE PROPIONATE [Concomitant]
     Indication: RHINITIS ALLERGIC
     Dates: start: 201303
  5. PROMETHAZINE [Concomitant]
     Indication: NAUSEA
     Dosage: PRN
  6. XANAX [Concomitant]
     Indication: ANXIETY
     Dosage: PRN

REACTIONS (1)
  - Device dislocation [Recovered/Resolved]
